FAERS Safety Report 20453317 (Version 1)
Quarter: 2022Q1

REPORT INFORMATION
  Report Type: Spontaneous
  Country: US (occurrence: None)
  Receive Date: 20220209
  Receipt Date: 20220209
  Transmission Date: 20220423
  Serious: No
  Sender: FDA-Public Use
  Company Number: None

PATIENT
  Sex: Female

DRUGS (2)
  1. OTEZLA [Suspect]
     Active Substance: APREMILAST
     Indication: Psoriasis
     Dosage: 30 MG TWICE A DAY ORAL
     Route: 048
     Dates: start: 20200311
  2. VARICELLA-ZOSTER VACCINE NOS [Suspect]
     Active Substance: VARICELLA-ZOSTER VACCINE

REACTIONS (2)
  - Psoriasis [None]
  - Pruritus [None]
